FAERS Safety Report 24838394 (Version 1)
Quarter: 2025Q1

REPORT INFORMATION
  Report Type: Spontaneous
  Country: US (occurrence: US)
  Receive Date: 20250113
  Receipt Date: 20250113
  Transmission Date: 20250408
  Serious: No
  Sender: FOUNDATION CONSUMER BRANDS
  Company Number: US-FOUNDATIONCONSUMERHC-2024-US-025964

PATIENT
  Age: 66 Year
  Sex: Female
  Weight: 73.03 kg

DRUGS (2)
  1. ALAVERT ALLERGY [Suspect]
     Active Substance: LORATADINE
     Indication: Seasonal allergy
     Route: 048
     Dates: start: 20240501, end: 20240502
  2. VITAMINS [Concomitant]
     Active Substance: VITAMINS

REACTIONS (1)
  - Drug ineffective [Recovered/Resolved]

NARRATIVE: CASE EVENT DATE: 20240501
